FAERS Safety Report 9171398 (Version 9)
Quarter: 2015Q3

REPORT INFORMATION
  Report Type: Report from Study
  Country: FR (occurrence: FR)
  Receive Date: 20130319
  Receipt Date: 20150703
  Transmission Date: 20151125
  Serious: Yes (Hospitalization, Other)
  Sender: FDA-Public Use
  Company Number: FR-ROCHE-1200872

PATIENT
  Age: 73 Year
  Sex: Female
  Weight: 63.25 kg

DRUGS (13)
  1. TRASTUZUMAB [Suspect]
     Active Substance: TRASTUZUMAB
     Dosage: MAINTAINANCE DOSE APPROXIMATELY 3 WEEKS LATER
     Route: 042
  2. CARBOPLATIN. [Suspect]
     Active Substance: CARBOPLATIN
     Indication: BREAST CANCER
     Route: 065
  3. STAGID [Concomitant]
     Active Substance: METFORMIN PAMOATE
     Route: 065
     Dates: start: 1992
  4. VALDOXAN [Concomitant]
     Active Substance: AGOMELATINE
     Route: 065
     Dates: start: 2009
  5. LEVOTHYROX [Concomitant]
     Active Substance: LEVOTHYROXINE
     Route: 065
     Dates: start: 1978
  6. METEOSPASMYL [Concomitant]
     Active Substance: ALVERINE CITRATE\DIMETHICONE
     Route: 065
     Dates: start: 2003
  7. OMACOR [Concomitant]
     Active Substance: OMEGA-3-ACID ETHYL ESTERS
     Route: 065
     Dates: start: 2012
  8. BLINDED PERTUZUMAB [Suspect]
     Active Substance: PERTUZUMAB
     Indication: BREAST CANCER
     Dosage: DATE OF LAST DOSE PRIOR TO SAE 13/FEB/2013. LOADING DOSE
     Route: 042
     Dates: start: 20130213
  9. DOCETAXEL. [Suspect]
     Active Substance: DOCETAXEL
     Indication: BREAST CANCER
     Route: 065
  10. TOCO [Concomitant]
     Active Substance: UNSPECIFIED INGREDIENT
     Route: 065
     Dates: start: 2012
  11. SEROPRAM [Concomitant]
     Active Substance: CITALOPRAM HYDROBROMIDE
     Route: 065
     Dates: start: 2003
  12. BLINDED PERTUZUMAB [Suspect]
     Active Substance: PERTUZUMAB
     Dosage: MAINTAINANCE DOSE APPROXIMATELY 3 WEEKS LATER
     Route: 042
  13. TRASTUZUMAB [Suspect]
     Active Substance: TRASTUZUMAB
     Indication: BREAST CANCER
     Dosage: LOADING DOSE
     Route: 042

REACTIONS (3)
  - Gastrointestinal pain [Recovered/Resolved]
  - Febrile neutropenia [Recovered/Resolved]
  - Gastrointestinal pain [Recovered/Resolved]

NARRATIVE: CASE EVENT DATE: 20130218
